FAERS Safety Report 15845159 (Version 2)
Quarter: 2019Q1

REPORT INFORMATION
  Report Type: Spontaneous
  Country: DE (occurrence: DE)
  Receive Date: 20190119
  Receipt Date: 20190222
  Transmission Date: 20190417
  Serious: Yes (Hospitalization, Other)
  Sender: FDA-Public Use
  Company Number: DE-AUROBINDO-AUR-APL-2019-002256

PATIENT

DRUGS (11)
  1. 5-FU [Suspect]
     Active Substance: FLUOROURACIL
     Dosage: 950 MILLIGRAM, 2 WEEKS
     Route: 040
     Dates: start: 20130618, end: 20130619
  2. ZOFRAN [Concomitant]
     Active Substance: ONDANSETRON HYDROCHLORIDE
     Indication: PROPHYLAXIS OF NAUSEA AND VOMITING
     Dosage: 16 MILLIGRAM, ON D1 AND 2
     Route: 042
     Dates: start: 20130212, end: 20130618
  3. BEVACIZUMAB. [Suspect]
     Active Substance: BEVACIZUMAB
     Dosage: 240 MILLIGRAM, FREQUENCY: ON D1
     Route: 042
     Dates: start: 20130618, end: 20130618
  4. 5-FU [Suspect]
     Active Substance: FLUOROURACIL
     Dosage: 1400 MILLIGRAM
     Route: 065
     Dates: start: 20130618, end: 20130620
  5. OXALIPLATIN. [Suspect]
     Active Substance: OXALIPLATIN
     Dosage: 125 MILLIGRAM, 2 WEEKS, FREQUENCY: ON D1
     Route: 042
     Dates: start: 20130212, end: 20130212
  6. 5-FU [Suspect]
     Active Substance: FLUOROURACIL
     Dosage: 1750 MILLIGRAM
     Route: 065
     Dates: start: 20130212, end: 20130214
  7. FOLINIC ACID [Concomitant]
     Active Substance: LEUCOVORIN
     Indication: COLORECTAL CANCER
     Dosage: 600 MILLIGRAM
     Route: 065
     Dates: start: 20130212, end: 20130619
  8. OXALIPLATIN. [Suspect]
     Active Substance: OXALIPLATIN
     Indication: PRODUCT USED FOR UNKNOWN INDICATION
     Dosage: 100 MILLIGRAM 2 WEEKS FREQUENCY: ON D1
     Route: 042
     Dates: start: 20130618, end: 20130618
  9. 5-FU [Suspect]
     Active Substance: FLUOROURACIL
     Indication: COLORECTAL CANCER
     Dosage: FREQUENCY: ON D1 AND 2
     Route: 040
     Dates: start: 20130212, end: 20130213
  10. BEVACIZUMAB. [Suspect]
     Active Substance: BEVACIZUMAB
     Indication: PRODUCT USED FOR UNKNOWN INDICATION
     Dosage: 240 MILLIGRAM, 2 WEEK, FREQUENCY: ON D1 (D:DAY)
     Route: 042
     Dates: start: 20130226, end: 20130226
  11. DEXAMETHASON [Concomitant]
     Active Substance: DEXAMETHASONE
     Indication: PROPHYLAXIS OF NAUSEA AND VOMITING
     Dosage: 32 MILLIGRAM, ON D1 AND 2
     Route: 042
     Dates: start: 20130212, end: 20130618

REACTIONS (4)
  - Dyspnoea [Recovered/Resolved]
  - Asthenia [Recovered/Resolved]
  - Thrombosis [Recovered/Resolved]
  - Cardiac tamponade [Recovered/Resolved]

NARRATIVE: CASE EVENT DATE: 20130625
